FAERS Safety Report 8390908-7 (Version None)
Quarter: 2012Q2

REPORT INFORMATION
  Report Type: 
  Country: None (occurrence: None)
  Receive Date: 20120529
  Receipt Date: 20120419
  Transmission Date: 20120825
  Serious: Yes (Hospitalization, Other)
  Sender: FDA-Public Use
  Company Number: PHHY2012BR034073

PATIENT
  Sex: Male

DRUGS (2)
  1. DIOVAN HCT [Suspect]
     Dosage: 1 DF (320/12.5 MG), UNK
  2. DIOVAN HCT [Suspect]
     Dosage: UNK UKN, UNK

REACTIONS (4)
  - TACHYCARDIA [None]
  - AORTIC INJURY [None]
  - HAEMORRHAGE [None]
  - PYREXIA [None]
